FAERS Safety Report 20407447 (Version 1)
Quarter: 2022Q1

REPORT INFORMATION
  Report Type: Spontaneous
  Country: CN (occurrence: CN)
  Receive Date: 20220131
  Receipt Date: 20220131
  Transmission Date: 20220423
  Serious: Yes (Death)
  Sender: FDA-Public Use
  Company Number: CN-Fresenius Kabi-FK202201167

PATIENT
  Age: 56 Year
  Sex: Male

DRUGS (1)
  1. BORTEZOMIB [Suspect]
     Active Substance: BORTEZOMIB
     Indication: Chemotherapy
     Route: 065

REACTIONS (2)
  - Cardiotoxicity [Fatal]
  - Ventricular fibrillation [Fatal]
